FAERS Safety Report 22355643 (Version 1)
Quarter: 2023Q2

REPORT INFORMATION
  Report Type: Other
  Country: CA (occurrence: CA)
  Receive Date: 20230523
  Receipt Date: 20230523
  Transmission Date: 20230721
  Serious: Yes (Death)
  Sender: FDA-Public Use
  Company Number: CA-GE HEALTHCARE-2023CSU003884

PATIENT
  Age: 33 Year
  Sex: Female

DRUGS (2)
  1. OMNIPAQUE [Suspect]
     Active Substance: IOHEXOL
     Indication: Computerised tomogram abdomen
     Dosage: 80 ML, SINGLE
     Route: 042
  2. OMNIPAQUE [Suspect]
     Active Substance: IOHEXOL
     Indication: Product used for unknown indication

REACTIONS (11)
  - Resuscitation [Fatal]
  - Ventricular fibrillation [Fatal]
  - Pulseless electrical activity [Fatal]
  - Anaphylactic reaction [Fatal]
  - Bradycardia [Fatal]
  - Bronchospasm [Fatal]
  - Epiglottic oedema [Fatal]
  - Hypotension [Fatal]
  - Lip swelling [Fatal]
  - Pharyngeal oedema [Fatal]
  - Seizure [Fatal]
